FAERS Safety Report 6526252-X (Version None)
Quarter: 2009Q4

REPORT INFORMATION
  Report Type: 
  Country: None (occurrence: None)
  Receive Date: 20091228
  Receipt Date: 20091210
  Transmission Date: 20100525
  Serious: Yes (Death, Other)
  Sender: FDA-Public Use
  Company Number: 2009S1008916

PATIENT
  Age: 64 Year
  Sex: Female
  Weight: 58.9676 kg

DRUGS (3)
  1. PHOSPHOSODA UNFLAVORED [Suspect]
     Indication: COLONOSCOPY
     Dosage: 45 ML; PO
     Route: 048
     Dates: start: 20080612, end: 20080612
  2. PHOSPHOSODA UNFLAVORED [Suspect]
     Indication: COLONOSCOPY
     Dosage: 30 ML; PO
     Route: 048
     Dates: start: 20080601, end: 20080601
  3. INSULIN [Concomitant]

REACTIONS (2)
  - MALAISE [None]
  - SUDDEN DEATH [None]
